FAERS Safety Report 10735008 (Version 1)
Quarter: 2015Q1

REPORT INFORMATION
  Report Type: Spontaneous
  Country: US (occurrence: US)
  Receive Date: 20150123
  Receipt Date: 20150123
  Transmission Date: 20150721
  Serious: Yes (Hospitalization, Other)
  Sender: FDA-Public Use
  Company Number: US-CELGENEUS-USA-2014104658

PATIENT
  Sex: Male

DRUGS (3)
  1. REVLIMID [Suspect]
     Active Substance: LENALIDOMIDE
     Route: 048
     Dates: start: 20141102, end: 20141105
  2. REVLIMID [Suspect]
     Active Substance: LENALIDOMIDE
     Route: 048
     Dates: start: 20141125, end: 20141211
  3. REVLIMID [Suspect]
     Active Substance: LENALIDOMIDE
     Indication: PLASMA CELL MYELOMA
     Route: 048
     Dates: start: 20131211, end: 20140828

REACTIONS (5)
  - Dyspnoea [Recovered/Resolved]
  - Post procedural haemorrhage [Unknown]
  - Thrombocytopenia [Unknown]
  - Urinary retention [Unknown]
  - Prostatic disorder [Recovered/Resolved]

NARRATIVE: CASE EVENT DATE: 2014
